FAERS Safety Report 21301106 (Version 2)
Quarter: 2022Q3

REPORT INFORMATION
  Report Type: Spontaneous
  Country: US (occurrence: US)
  Receive Date: 20220907
  Receipt Date: 20220914
  Transmission Date: 20221027
  Serious: No
  Sender: FDA-Public Use
  Company Number: US-GILEAD-2022-0595891

PATIENT
  Sex: Female

DRUGS (2)
  1. EPCLUSA [Suspect]
     Active Substance: SOFOSBUVIR\VELPATASVIR
     Indication: Hepatitis C
     Dosage: 1 DOSAGE FORM, SPRINKLE 1 PACKET OF ORAL PELLETS ON ONE OR MORE SPOONFULS OF NON- ACIDIC FOOD AT OR
     Route: 048
     Dates: start: 20220824, end: 20220902
  2. CHILDRENS TYLENOL [Concomitant]
     Active Substance: ACETAMINOPHEN

REACTIONS (3)
  - Product use complaint [Unknown]
  - Product use issue [Unknown]
  - Wrong technique in product usage process [Recovered/Resolved]
